FAERS Safety Report 17828350 (Version 2)
Quarter: 2020Q2

REPORT INFORMATION
  Report Type: Spontaneous
  Country: US (occurrence: US)
  Receive Date: 20200527
  Receipt Date: 20200604
  Transmission Date: 20200714
  Serious: No
  Sender: FDA-Public Use
  Company Number: US-GW PHARMA-202005USGW01839

PATIENT

DRUGS (10)
  1. EPIDIOLEX [Suspect]
     Active Substance: CANNABIDIOL
     Dosage: 14.5 MG/KG, 400 MILLIGRAM, BID
     Route: 048
     Dates: start: 20200406
  2. ONFI [Concomitant]
     Active Substance: CLOBAZAM
     Dosage: 5 MILLIGRAM, QD (AT NIGHT, 2ML)
     Route: 065
  3. MEDROXYPROGESTERON [Concomitant]
     Active Substance: MEDROXYPROGESTERONE ACETATE
     Indication: PRODUCT USED FOR UNKNOWN INDICATION
     Dosage: UNK
     Route: 065
  4. TEGRETOL [Suspect]
     Active Substance: CARBAMAZEPINE
     Dosage: 15MG/KG, 600 MILLIGRAM, QD (3 IN THE MORNING AND 3 AT NIGHT)
     Route: 065
  5. TEGRETOL [Suspect]
     Active Substance: CARBAMAZEPINE
     Indication: SEIZURE
     Dosage: UNK, HIGHER DOSE
     Route: 065
  6. DEPAKOTE [Concomitant]
     Active Substance: DIVALPROEX SODIUM
     Indication: SEIZURE
     Dosage: 21MG/KG, 875 MILLIGRAM, QD (375 MG IN THE MORNING AND 500MG AT NIGHT)
     Route: 065
  7. EPIDIOLEX [Suspect]
     Active Substance: CANNABIDIOL
     Indication: LENNOX-GASTAUT SYNDROME
     Dosage: 11MG/KG, 300 MILLIGRAM, BID
     Route: 048
     Dates: start: 20191108, end: 20200405
  8. ONFI [Concomitant]
     Active Substance: CLOBAZAM
     Indication: SEIZURE
     Dosage: UNK, PRIOR DOSE DECREASE
     Route: 065
  9. KEPPRA [Concomitant]
     Active Substance: LEVETIRACETAM
     Indication: SEIZURE
     Dosage: 35MG/KG, 700 MILLIGRAM, BID
     Route: 065
  10. CARBAMAZEPINE. [Concomitant]
     Active Substance: CARBAMAZEPINE
     Indication: SEIZURE
     Dosage: 100 MILLIGRAM, BID
     Route: 065

REACTIONS (5)
  - Seizure [Not Recovered/Not Resolved]
  - Seizure [Not Recovered/Not Resolved]
  - Drug ineffective [Not Recovered/Not Resolved]
  - Sleep disorder [Not Recovered/Not Resolved]
  - Decreased appetite [Not Recovered/Not Resolved]

NARRATIVE: CASE EVENT DATE: 20200518
